FAERS Safety Report 4280143-6 (Version None)
Quarter: 2004Q1

REPORT INFORMATION
  Report Type: 
  Country: None (occurrence: None)
  Receive Date: 20040126
  Receipt Date: 20040113
  Transmission Date: 20041129
  Serious: Yes (Hospitalization)
  Sender: FDA-Public Use
  Company Number: FR-JNJFOC-20040102969

PATIENT
  Age: 39 Year
  Sex: Male

DRUGS (6)
  1. MOTILIUM (DOMEPRIDONE) TABLETS [Suspect]
     Indication: DRUG USE FOR UNKNOWN INDICATION
     Dosage: ORAL
     Route: 048
     Dates: start: 20031101, end: 20031101
  2. DOXORUBICIN HYDROCHLORIDE [Suspect]
     Indication: KAPOSI'S SARCOMA
     Dosage: 35 MG, IN 1 DAY, INTRAVENOUS
     Route: 042
     Dates: start: 20031118, end: 20031118
  3. ONDANSETRON HCL [Suspect]
     Indication: DRUG USE FOR UNKNOWN INDICATION
     Dosage: ORAL
     Route: 048
     Dates: start: 20031101, end: 20031101
  4. ZIAGEN [Concomitant]
  5. KALERTA (KALERTA) [Concomitant]
  6. VIREAD (IDOXURIDINE) [Concomitant]

REACTIONS (7)
  - ALANINE AMINOTRANSFERASE INCREASED [None]
  - ASPARTATE AMINOTRANSFERASE INCREASED [None]
  - BLOOD ALKALINE PHOSPHATASE INCREASED [None]
  - BURNING SENSATION [None]
  - GAMMA-GLUTAMYLTRANSFERASE INCREASED [None]
  - HYPERAESTHESIA [None]
  - PAIN [None]
